FAERS Safety Report 20317865 (Version 1)
Quarter: 2022Q1

REPORT INFORMATION
  Report Type: Report from Study
  Country: PK (occurrence: PK)
  Receive Date: 20220110
  Receipt Date: 20220110
  Transmission Date: 20220424
  Serious: Yes (Death)
  Sender: FDA-Public Use
  Company Number: PK-NOVARTISPH-NVSC2022PK004279

PATIENT
  Age: 53 Year
  Sex: Female
  Weight: 66 kg

DRUGS (1)
  1. TASIGNA [Suspect]
     Active Substance: NILOTINIB
     Indication: Product used for unknown indication
     Dosage: 600 MG, BID
     Route: 048
     Dates: start: 20200331, end: 20210831

REACTIONS (1)
  - Death [Fatal]

NARRATIVE: CASE EVENT DATE: 20211205
